FAERS Safety Report 16542570 (Version 3)
Quarter: 2019Q3

REPORT INFORMATION
  Report Type: Report from Study
  Country: None (occurrence: US)
  Receive Date: 20190709
  Receipt Date: 20190725
  Transmission Date: 20191004
  Serious: Yes (Other)
  Sender: FDA-Public Use
  Company Number: US-ABBVIE-19K-163-2840386-00

PATIENT
  Age: 38 Year
  Sex: Female
  Weight: 63.56 kg

DRUGS (2)
  1. MAVYRET [Suspect]
     Active Substance: GLECAPREVIR\PIBRENTASVIR
     Dosage: BY MOUTH WITH FOOD?STRENGTH: 100/40MG
     Route: 048
     Dates: start: 2019
  2. MAVYRET [Suspect]
     Active Substance: GLECAPREVIR\PIBRENTASVIR
     Indication: CHRONIC HEPATITIS C
     Dosage: BY MOUTH WITH FOOD?STRENGTH: 100/40MG
     Route: 048
     Dates: start: 20190529, end: 201906

REACTIONS (12)
  - Vomiting [Recovering/Resolving]
  - Gastric disorder [Not Recovered/Not Resolved]
  - Platelet count decreased [Unknown]
  - Gastrooesophageal reflux disease [Recovering/Resolving]
  - Rash [Not Recovered/Not Resolved]
  - Drug ineffective [Unknown]
  - Increased tendency to bruise [Not Recovered/Not Resolved]
  - Incorrect dose administered [Recovered/Resolved]
  - Diaphragmatic rupture [Recovering/Resolving]
  - Colitis [Recovering/Resolving]
  - Product packaging confusion [Unknown]
  - Malaise [Unknown]

NARRATIVE: CASE EVENT DATE: 20190529
